FAERS Safety Report 11547299 (Version 1)
Quarter: 2015Q3

REPORT INFORMATION
  Report Type: Spontaneous
  Country: EG (occurrence: EG)
  Receive Date: 20150924
  Receipt Date: 20150924
  Transmission Date: 20151125
  Serious: Yes (Other)
  Sender: FDA-Public Use
  Company Number: EG-MYLANLABS-2015M1031918

PATIENT

DRUGS (4)
  1. METHYLPREDNISOLONE. [Suspect]
     Active Substance: METHYLPREDNISOLONE
     Dosage: 0.5MG/KG/DAY FOR ANOTHER 3 DAYS
     Route: 042
  2. PREDNISOLONE. [Suspect]
     Active Substance: PREDNISOLONE
     Indication: IMMUNOSUPPRESSANT DRUG THERAPY
     Dosage: 0.3MG/KG/DAY FOR ONE MONTH
     Route: 048
  3. TACROLIMUS. [Concomitant]
     Active Substance: TACROLIMUS
     Indication: IMMUNOSUPPRESSANT DRUG THERAPY
     Dosage: INCREASED GRADUALLY TO ATTAIN TROUGH LEVEL OF 10-15 NG/ML.
  4. METHYLPREDNISOLONE. [Suspect]
     Active Substance: METHYLPREDNISOLONE
     Indication: IMMUNOSUPPRESSANT DRUG THERAPY
     Dosage: 1MG/KG/DAY FOR FIRST 3 DAYS AND THEN REDUCED TO 0.5MG/KG/DAY
     Route: 042

REACTIONS (1)
  - Pneumatosis intestinalis [Unknown]
